FAERS Safety Report 9457716 (Version 1)
Quarter: 2013Q3

REPORT INFORMATION
  Report Type: Spontaneous
  Country: DE (occurrence: None)
  Receive Date: 20130812
  Receipt Date: 20130812
  Transmission Date: 20140515
  Serious: Yes (Hospitalization, Other)
  Sender: FDA-Public Use
  Company Number: AG-2012-1273

PATIENT
  Age: 68 Year
  Sex: Female
  Weight: 82.4 kg

DRUGS (11)
  1. CHLORAMBUCIL [Suspect]
     Indication: CHRONIC LYMPHOCYTIC LEUKAEMIA
     Dosage: DAY 1 +  DAY 15/ EVERY 28 DAYS
     Route: 048
     Dates: start: 20111122, end: 20111213
  2. OBINUTUZUMAB [Suspect]
     Indication: CHRONIC LYMPHOCYTIC LEUKAEMIA
     Route: 042
     Dates: start: 20111122, end: 20111123
  3. PARACETAMOL [Concomitant]
  4. ASS-100 [Concomitant]
  5. RAMPIRIL [Concomitant]
  6. OXYBUTYNIN [Concomitant]
  7. DIMETINDEN [Concomitant]
  8. PREDNISOLON [Concomitant]
  9. ALLOPURINOL [Concomitant]
  10. COTRIM FORTE [Concomitant]
  11. SIMVASTATIN [Concomitant]

REACTIONS (8)
  - Liver disorder [None]
  - Infusion related reaction [None]
  - Neutropenia [None]
  - General physical condition abnormal [None]
  - Nausea [None]
  - Liver injury [None]
  - Tumour lysis syndrome [None]
  - Hypotension [None]
